FAERS Safety Report 16156089 (Version 1)
Quarter: 2019Q2

REPORT INFORMATION
  Report Type: Spontaneous
  Country: PT (occurrence: PT)
  Receive Date: 20190404
  Receipt Date: 20190404
  Transmission Date: 20190711
  Serious: Yes (Other)
  Sender: FDA-Public Use
  Company Number: PT-ROCHE-2294336

PATIENT
  Age: 71 Year
  Sex: Male

DRUGS (2)
  1. BENDAMUSTINE HYDROCHLORIDE. [Suspect]
     Active Substance: BENDAMUSTINE HYDROCHLORIDE
     Indication: MANTLE CELL LYMPHOMA
     Dosage: UNK UNK, CYCLIC?POWDER (EXCEPT DUSTING POWDER)??START DATE: /APR/2015
     Route: 042
     Dates: end: 201506
  2. RITUXIMAB. [Suspect]
     Active Substance: RITUXIMAB
     Indication: MANTLE CELL LYMPHOMA
     Dosage: UNK UNK, CYCLIC?START DATE: /APR/2015
     Route: 042
     Dates: end: 201506

REACTIONS (4)
  - Therapy partial responder [Unknown]
  - Subdural haematoma [Unknown]
  - Infusion related reaction [Unknown]
  - Serum sickness [Unknown]

NARRATIVE: CASE EVENT DATE: 2015
